FAERS Safety Report 22365973 (Version 1)
Quarter: 2023Q2

REPORT INFORMATION
  Report Type: Spontaneous
  Country: US (occurrence: US)
  Receive Date: 20230525
  Receipt Date: 20230525
  Transmission Date: 20230722
  Serious: Yes (Other)
  Sender: FDA-Public Use
  Company Number: US-MLMSERVICE-20230511-4278961-2

PATIENT
  Age: 4 Decade
  Sex: Male

DRUGS (4)
  1. MYCOPHENOLATE MOFETIL [Suspect]
     Active Substance: MYCOPHENOLATE MOFETIL
     Indication: Product used for unknown indication
     Dosage: REDUCED DOSE
  2. TACROLIMUS [Concomitant]
     Active Substance: TACROLIMUS
  3. PREDNISONE [Concomitant]
     Active Substance: PREDNISONE
  4. MYCOPHENOLATE MOFETIL [Suspect]
     Active Substance: MYCOPHENOLATE MOFETIL
     Indication: Product used for unknown indication

REACTIONS (1)
  - Adenovirus interstitial nephritis [Recovered/Resolved]
